FAERS Safety Report 10486184 (Version 1)
Quarter: 2014Q3

REPORT INFORMATION
  Report Type: Spontaneous
  Country: US (occurrence: None)
  Receive Date: 20140926
  Receipt Date: 20140926
  Transmission Date: 20150326
  Serious: Yes (Other)
  Sender: FDA-Public Use
  Company Number: 2009S1000367C

PATIENT
  Age: 55 Year
  Sex: Female
  Weight: 113 kg

DRUGS (9)
  1. LOTREL (BENAZEPRIL HYDROCHLORIDE, AMLODIPINE BESILATE) [Concomitant]
  2. PHOSPHO-SODA [Suspect]
     Active Substance: SODIUM PHOSPHATE, DIBASIC\SODIUM PHOSPHATE, MONOBASIC
     Indication: COLONOSCOPY
     Route: 048
     Dates: start: 20070624, end: 20070624
  3. HYDROCHLOROTHIAZIDE (HYDROCHLOROTHIAZIDE) [Concomitant]
     Active Substance: HYDROCHLOROTHIAZIDE
  4. AVAPRO [Concomitant]
     Active Substance: IRBESARTAN
  5. DICYCLOMINE HCL (DICYCLOVERINE HYDROCHLORIDE) [Concomitant]
  6. METAMUCIL (PLANTAGO OVATA) [Concomitant]
  7. ASPIRIN (ACETYLSALICYLIC ACID) [Concomitant]
     Active Substance: ASPIRIN
  8. BENICAR [Concomitant]
     Active Substance: OLMESARTAN MEDOXOMIL
  9. LESCOL (FLUVASTATIN SODIUM) [Concomitant]

REACTIONS (6)
  - Renal failure chronic [None]
  - Nephrogenic anaemia [None]
  - Acute phosphate nephropathy [None]
  - Renal failure [None]
  - Renal failure acute [None]
  - Hyperparathyroidism secondary [None]

NARRATIVE: CASE EVENT DATE: 200708
